FAERS Safety Report 4681411-6 (Version None)
Quarter: 2005Q2

REPORT INFORMATION
  Report Type: 
  Country: None (occurrence: None)
  Receive Date: 20050603
  Receipt Date: 20050531
  Transmission Date: 20051028
  Serious: Yes (Life-Threatening, Hospitalization)
  Sender: FDA-Public Use
  Company Number: 2005UW08415

PATIENT
  Age: 30 Year
  Sex: Female
  Weight: 70 kg

DRUGS (3)
  1. XYLOCAINE [Suspect]
     Indication: CAESAREAN SECTION
     Dosage: 9 ML
     Route: 037
     Dates: start: 20050520, end: 20050520
  2. NAROPIN [Suspect]
     Indication: CAESAREAN SECTION
     Dosage: 9 ML
     Route: 037
     Dates: start: 20050520, end: 20050520
  3. FENTANYL [Concomitant]

REACTIONS (6)
  - DEAFNESS [None]
  - GRAND MAL CONVULSION [None]
  - INCORRECT ROUTE OF DRUG ADMINISTRATION [None]
  - MEDICATION ERROR [None]
  - SINUS TACHYCARDIA [None]
  - VISION BLURRED [None]
